FAERS Safety Report 8548828-0 (Version None)
Quarter: 2012Q3

REPORT INFORMATION
  Report Type: 
  Country: None (occurrence: None)
  Receive Date: 20120730
  Receipt Date: 20120718
  Transmission Date: 20120928
  Serious: Yes (Death, Other)
  Sender: FDA-Public Use
  Company Number: DE-BRISTOL-MYERS SQUIBB COMPANY-16749475

PATIENT
  Age: 46 Year
  Sex: Male
  Weight: 104 kg

DRUGS (4)
  1. CITALOPRAM HYDROBROMIDE [Suspect]
     Indication: DEPRESSED MOOD
     Dosage: FORMULATION-CITALOPRAM HCL
     Route: 048
  2. CLOZARIL [Suspect]
     Indication: SCHIZOPHRENIA
     Dosage: 1/7/2001
     Route: 048
     Dates: start: 19941205
  3. ARIPIPRAZOLE [Suspect]
     Indication: SCHIZOPHRENIA
     Route: 048
  4. MIRTAZAPINE [Suspect]
     Indication: DEPRESSED MOOD
     Route: 048

REACTIONS (3)
  - CONGESTIVE CARDIOMYOPATHY [None]
  - CARDIAC FAILURE CONGESTIVE [None]
  - ANTIPSYCHOTIC DRUG LEVEL ABOVE THERAPEUTIC [None]
